FAERS Safety Report 15975123 (Version 2)
Quarter: 2019Q1

REPORT INFORMATION
  Report Type: Spontaneous
  Country: US (occurrence: US)
  Receive Date: 20190218
  Receipt Date: 20190219
  Transmission Date: 20190418
  Serious: Yes (Other)
  Sender: FDA-Public Use
  Company Number: US-PFIZER INC-2019059982

PATIENT
  Age: 56 Year
  Sex: Female
  Weight: 56.69 kg

DRUGS (2)
  1. CIPROFLOXACIN. [Suspect]
     Active Substance: CIPROFLOXACIN
     Dosage: UNK
  2. CIPRO [Suspect]
     Active Substance: CIPROFLOXACIN HYDROCHLORIDE
     Indication: SINUSITIS
     Dosage: 500 MG, 2X/DAY
     Route: 048
     Dates: end: 201901

REACTIONS (2)
  - Memory impairment [Recovered/Resolved with Sequelae]
  - Speech disorder [Unknown]

NARRATIVE: CASE EVENT DATE: 201901
